FAERS Safety Report 22036246 (Version 1)
Quarter: 2023Q1

REPORT INFORMATION
  Report Type: Spontaneous
  Country: GB (occurrence: GB)
  Receive Date: 20230225
  Receipt Date: 20230225
  Transmission Date: 20230418
  Serious: Yes (Hospitalization, Other)
  Sender: FDA-Public Use
  Company Number: GB-MYLANLABS-2022M1138056

PATIENT
  Age: 33 Year
  Sex: Female
  Weight: 43.8 kg

DRUGS (7)
  1. ARIPIPRAZOLE [Suspect]
     Active Substance: ARIPIPRAZOLE
     Indication: Product used for unknown indication
     Dosage: UNK
     Route: 065
  2. OLANZAPINE [Suspect]
     Active Substance: OLANZAPINE
     Indication: Product used for unknown indication
     Dosage: UNK
     Route: 065
  3. QUETIAPINE [Suspect]
     Active Substance: QUETIAPINE
     Indication: Psychotic symptom
     Dosage: 25 MILLIGRAM, ONCE A DAY
     Route: 065
  4. RISPERIDONE [Suspect]
     Active Substance: RISPERIDONE
     Indication: Product used for unknown indication
     Dosage: UNK
     Route: 065
  5. CLOZARIL [Suspect]
     Active Substance: CLOZAPINE
     Indication: Schizophrenia
     Dosage: (25 MILLIGRAM MORNING/ 100 MG NIGHT)
     Route: 048
     Dates: start: 20210326, end: 20221208
  6. CLOZARIL [Suspect]
     Active Substance: CLOZAPINE
     Dosage: UNK
     Route: 048
     Dates: start: 20230208
  7. METOCLOPRAMIDE [Suspect]
     Active Substance: METOCLOPRAMIDE
     Indication: Product used for unknown indication
     Dosage: UNK
     Route: 065

REACTIONS (18)
  - Mental impairment [Unknown]
  - White blood cell count decreased [Recovered/Resolved]
  - Intellectual disability [Unknown]
  - Eosinophil count decreased [Recovered/Resolved]
  - Neutrophil count decreased [Recovered/Resolved]
  - Upper respiratory tract infection [Unknown]
  - General physical health deterioration [Unknown]
  - Extrapyramidal disorder [Unknown]
  - Dyskinesia [Unknown]
  - Salivary hypersecretion [Unknown]
  - Influenza [Unknown]
  - Weight decreased [Unknown]
  - Emotional distress [Unknown]
  - Gynaecomastia [Unknown]
  - Galactorrhoea [Unknown]
  - Oropharyngeal spasm [Unknown]
  - Loss of personal independence in daily activities [Unknown]
  - Off label use [Unknown]

NARRATIVE: CASE EVENT DATE: 20221201
